FAERS Safety Report 4561110-1 (Version None)
Quarter: 2005Q1

REPORT INFORMATION
  Report Type: 
  Country: None (occurrence: None)
  Receive Date: 20050126
  Receipt Date: 20050119
  Transmission Date: 20050727
  Serious: Yes (Hospitalization)
  Sender: FDA-Public Use
  Company Number: JP-BRISTOL-MYERS SQUIBB COMPANY-12833067

PATIENT
  Age: 34 Year
  Sex: Male

DRUGS (10)
  1. STOCRIN [Suspect]
     Indication: HIV INFECTION
     Route: 048
     Dates: start: 20030427, end: 20031224
  2. VIDEX EC [Suspect]
     Indication: HIV INFECTION
     Route: 048
     Dates: start: 20030427, end: 20031224
  3. ZIAGEN [Suspect]
     Indication: HIV INFECTION
     Route: 048
     Dates: start: 20030427, end: 20031224
  4. EPIVIR [Concomitant]
     Route: 048
     Dates: start: 19991101, end: 20030426
  5. ZERIT [Concomitant]
     Route: 048
     Dates: start: 19991101, end: 20030426
  6. VIRACEPT [Concomitant]
     Route: 048
     Dates: start: 19991101, end: 20031224
  7. HYDANTOL [Concomitant]
     Route: 048
     Dates: start: 19991101, end: 20030409
  8. DEPAKENE [Concomitant]
     Route: 048
     Dates: start: 20030410, end: 20030413
  9. EXCEGRAN [Concomitant]
     Dosage: 2 DOSAGE FORMS BID FROM 14-APR-2003 TO 16-APR-2003, 3 DOSAGE FORMS TID FROM 17-APR-2003
     Route: 048
     Dates: start: 20030414, end: 20030426
  10. PHENOBAL [Concomitant]
     Dosage: 90 MG DAILY FROM 16-APR-2003 TO 23-APR-2003, 60 MG DAILY FROM 24-APR-2003
     Route: 048
     Dates: start: 20030416, end: 20030430

REACTIONS (4)
  - CONDITION AGGRAVATED [None]
  - CONVULSION [None]
  - DIFFICULTY IN WALKING [None]
  - GRAND MAL CONVULSION [None]
